FAERS Safety Report 24334946 (Version 3)
Quarter: 2024Q4

REPORT INFORMATION
  Report Type: Spontaneous
  Country: JP (occurrence: JP)
  Receive Date: 20240918
  Receipt Date: 20241223
  Transmission Date: 20250115
  Serious: Yes (Other)
  Sender: EISAI
  Company Number: JP-Eisai-202407227_LEN-RCC_P_1

PATIENT
  Age: 79 Year
  Sex: Male

DRUGS (3)
  1. LENVIMA [Suspect]
     Active Substance: LENVATINIB
     Indication: Renal cell carcinoma
     Route: 048
     Dates: start: 2023, end: 202303
  2. LENVIMA [Suspect]
     Active Substance: LENVATINIB
     Route: 048
     Dates: start: 202303, end: 202409
  3. KEYTRUDA [Concomitant]
     Active Substance: PEMBROLIZUMAB
     Indication: Renal cell carcinoma
     Route: 042
     Dates: start: 2023, end: 202409

REACTIONS (3)
  - Femur fracture [Recovered/Resolved]
  - Fall [Unknown]
  - Renal impairment [Unknown]

NARRATIVE: CASE EVENT DATE: 20240901
